FAERS Safety Report 9846636 (Version 2)
Quarter: 2014Q1

REPORT INFORMATION
  Report Type: Spontaneous
  Country: GB (occurrence: GB)
  Receive Date: 20140127
  Receipt Date: 20140313
  Transmission Date: 20141002
  Serious: Yes (Other)
  Sender: FDA-Public Use
  Company Number: GB-GLAXOSMITHKLINE-B0962905A

PATIENT
  Age: 38 Year
  Sex: Female
  Weight: 72 kg

DRUGS (1)
  1. RANITIDINE [Suspect]
     Indication: PROPHYLAXIS AGAINST GASTROINTESTINAL ULCER
     Dosage: 150MG PER DAY
     Route: 048
     Dates: start: 20140109

REACTIONS (3)
  - Oedema mouth [Recovered/Resolved]
  - Pharyngeal oedema [Recovered/Resolved]
  - Paraesthesia [Recovered/Resolved]
